FAERS Safety Report 8585373-0 (Version None)
Quarter: 2012Q3

REPORT INFORMATION
  Report Type: 
  Country: None (occurrence: None)
  Receive Date: 20120810
  Receipt Date: 20120802
  Transmission Date: 20120928
  Serious: Yes (Hospitalization, Other)
  Sender: FDA-Public Use
  Company Number: US-ASTELLAS-2012US006342

PATIENT
  Sex: Male

DRUGS (1)
  1. ERLOTINIB HYDROCHLORIDE [Suspect]
     Indication: BILE DUCT CANCER
     Dosage: 100 MG, UID/QD
     Route: 048
     Dates: start: 20120710

REACTIONS (5)
  - NEOPLASM MALIGNANT [None]
  - OFF LABEL USE [None]
  - BACTERIAL SEPSIS [None]
  - PULMONARY EMBOLISM [None]
  - DEEP VEIN THROMBOSIS [None]
